FAERS Safety Report 6845758-7 (Version None)
Quarter: 2010Q3

REPORT INFORMATION
  Report Type: 
  Country: None (occurrence: None)
  Receive Date: 20100715
  Receipt Date: 20070823
  Transmission Date: 20110219
  Serious: No
  Sender: FDA-Public Use
  Company Number: US-PFIZER INC-2007071766

PATIENT
  Sex: Female
  Weight: 46.363 kg

DRUGS (4)
  1. CHANTIX [Suspect]
     Indication: SMOKING CESSATION THERAPY
     Dates: start: 20070701, end: 20070801
  2. VYTORIN [Concomitant]
  3. PRINZIDE [Concomitant]
  4. XALATAN [Concomitant]

REACTIONS (3)
  - INCREASED UPPER AIRWAY SECRETION [None]
  - NAUSEA [None]
  - VOMITING [None]
